FAERS Safety Report 20980751 (Version 1)
Quarter: 2022Q2

REPORT INFORMATION
  Report Type: Report from Study
  Country: BR (occurrence: BR)
  Receive Date: 20220620
  Receipt Date: 20220620
  Transmission Date: 20220720
  Serious: Yes (Death, Hospitalization)
  Sender: FDA-Public Use
  Company Number: BR-NOVARTISPH-NVSC2022BR139349

PATIENT
  Sex: Female

DRUGS (1)
  1. CRIZANLIZUMAB [Suspect]
     Active Substance: CRIZANLIZUMAB
     Indication: Product used for unknown indication
     Dosage: THE DATE THIS PATIENT LAST INFUSED THE MEDICATION, WHICH SHE USED REGULARLY, WAS ON 09/MAR
     Route: 065

REACTIONS (7)
  - Death [Fatal]
  - Anaemia [Unknown]
  - Skin ulcer [Unknown]
  - Pneumonia [Unknown]
  - Thrombosis [Unknown]
  - Cerebrovascular accident [Unknown]
  - Diarrhoea [Unknown]
